FAERS Safety Report 17303565 (Version 16)
Quarter: 2020Q3

REPORT INFORMATION
  Report Type: Report from Study
  Country: US (occurrence: US)
  Receive Date: 20200122
  Receipt Date: 20200821
  Transmission Date: 20201102
  Serious: Yes (Hospitalization)
  Sender: FDA-Public Use
  Company Number: US-ACTELION-A-NJ2019-192542

PATIENT
  Age: 46 Year
  Sex: Female
  Weight: 43.54 kg

DRUGS (11)
  1. VELETRI [Suspect]
     Active Substance: EPOPROSTENOL
     Dosage: 58 NG/KG, PER MIN
     Route: 042
  2. VELETRI [Suspect]
     Active Substance: EPOPROSTENOL
     Dosage: 51.8 NG/KG, PER MIN
     Route: 042
  3. VELETRI [Suspect]
     Active Substance: EPOPROSTENOL
     Dosage: 45.5 NG
     Route: 042
  4. TADALAFIL. [Concomitant]
     Active Substance: TADALAFIL
  5. VELETRI [Suspect]
     Active Substance: EPOPROSTENOL
     Dosage: 44 NG/KG, PER MIN
     Route: 042
  6. VELETRI [Suspect]
     Active Substance: EPOPROSTENOL
     Dosage: 40.5 NG/KG, PER MIN
     Route: 042
  7. VELETRI [Suspect]
     Active Substance: EPOPROSTENOL
     Dosage: UNK
     Route: 042
  8. VELETRI [Suspect]
     Active Substance: EPOPROSTENOL
     Indication: PULMONARY ARTERIAL HYPERTENSION
     Dosage: 64 NG/KG, PER MIN
     Route: 042
  9. VELETRI [Suspect]
     Active Substance: EPOPROSTENOL
     Dosage: 51.85 NG/KG/MIN
     Route: 042
  10. VELETRI [Suspect]
     Active Substance: EPOPROSTENOL
     Dosage: 66 NG/KG, PER MIN
     Route: 042
  11. OPSUMIT [Suspect]
     Active Substance: MACITENTAN
     Indication: PULMONARY ARTERIAL HYPERTENSION
     Dosage: 10 MG, QD
     Route: 048
     Dates: start: 20161220

REACTIONS (48)
  - Cardiogenic shock [Unknown]
  - Overdose [Unknown]
  - Pulmonary hypertension [Unknown]
  - Bronchitis [Unknown]
  - Weight increased [Unknown]
  - Dyspnoea [Unknown]
  - Device issue [Unknown]
  - Gastrointestinal disorder [Not Recovered/Not Resolved]
  - Scleroderma [Unknown]
  - Flushing [Unknown]
  - Dyspnoea exertional [Unknown]
  - Device malfunction [Unknown]
  - Sneezing [Unknown]
  - Nasal congestion [Unknown]
  - Respiratory syncytial virus infection [Unknown]
  - Device occlusion [Unknown]
  - Oedema [Unknown]
  - Weight decreased [Unknown]
  - Catheter site thrombosis [Unknown]
  - Ulcer [Unknown]
  - Lethargy [Unknown]
  - Insomnia [Unknown]
  - Nausea [Unknown]
  - Adverse event [Unknown]
  - Seasonal allergy [Unknown]
  - Erythema [Unknown]
  - Catheter site haemorrhage [Unknown]
  - Eczema [Unknown]
  - Palpitations [Unknown]
  - Decreased appetite [Unknown]
  - Anaemia [Unknown]
  - Depression [Unknown]
  - Catheter management [Unknown]
  - Abdominal distension [Unknown]
  - Blood potassium decreased [Recovered/Resolved]
  - Pulmonary arterial hypertension [Unknown]
  - Dizziness [Unknown]
  - Sluggishness [Unknown]
  - Asthenia [Unknown]
  - Malaise [Unknown]
  - Constipation [Unknown]
  - Hospitalisation [Unknown]
  - Oedema peripheral [Unknown]
  - Localised oedema [Unknown]
  - Fluid overload [Unknown]
  - Device physical property issue [Unknown]
  - Pruritus [Unknown]
  - Abdominal pain [Unknown]

NARRATIVE: CASE EVENT DATE: 20200602
